FAERS Safety Report 16877216 (Version 1)
Quarter: 2019Q4

REPORT INFORMATION
  Report Type: Spontaneous
  Country: US (occurrence: US)
  Receive Date: 20191002
  Receipt Date: 20191002
  Transmission Date: 20200122
  Serious: Yes (Other)
  Sender: FDA-Public Use
  Company Number: US-BRISTOL-MYERS SQUIBB COMPANY-BMS-2019-094056

PATIENT
  Age: 88 Year
  Sex: Female

DRUGS (2)
  1. ELIQUIS [Suspect]
     Active Substance: APIXABAN
     Indication: PRODUCT USED FOR UNKNOWN INDICATION
     Dosage: 5 MILLIGRAM, HALF OF 5 MG PILL IN THE MORNING AND THE OTHER HALF IN THE EVENING
     Route: 065
  2. ELIQUIS [Suspect]
     Active Substance: APIXABAN
     Indication: CARDIAC PACEMAKER INSERTION
     Dosage: 5 MILLIGRAM, BID
     Route: 065
     Dates: start: 201908

REACTIONS (5)
  - Renal haemorrhage [Unknown]
  - Haematochezia [Unknown]
  - Off label use [Unknown]
  - Pleural effusion [Unknown]
  - Intentional product use issue [Unknown]

NARRATIVE: CASE EVENT DATE: 201909
